FAERS Safety Report 9523151 (Version 9)
Quarter: 2015Q3

REPORT INFORMATION
  Report Type: Spontaneous
  Country: US (occurrence: US)
  Receive Date: 20130913
  Receipt Date: 20150727
  Transmission Date: 20151125
  Serious: Yes (Hospitalization, Other)
  Sender: FDA-Public Use
  Company Number: US-GLAXOSMITHKLINE-A1019489A

PATIENT
  Sex: Female

DRUGS (9)
  1. FLOLAN [Suspect]
     Active Substance: EPOPROSTENOL SODIUM
     Dosage: UNK
     Dates: start: 19990813
  2. FLOLAN [Suspect]
     Active Substance: EPOPROSTENOL SODIUM
     Dosage: UNK
     Dates: start: 19990813
  3. COUMADIN [Concomitant]
     Active Substance: WARFARIN SODIUM
  4. FLOLAN [Suspect]
     Active Substance: EPOPROSTENOL SODIUM
     Indication: PULMONARY ARTERIAL HYPERTENSION
     Dosage: 129 NG/KG/MIN CONTINUOUSLY (CONCENTRATION 150,000 NG/ML; 1.5 MG VIAL STRENGTH, 91 ML/DAY)135 NG[...]
     Route: 042
     Dates: start: 19990813
  5. FLOLAN [Suspect]
     Active Substance: EPOPROSTENOL SODIUM
     Dosage: UNK
     Dates: start: 19990813
  6. FLOLAN [Suspect]
     Active Substance: EPOPROSTENOL SODIUM
     Dosage: 188 NG/KG/MIN CONTINUOUS
     Route: 042
  7. FLOLAN [Suspect]
     Active Substance: EPOPROSTENOL SODIUM
     Dosage: UNK
     Dates: start: 19990813
  8. FLOLAN [Suspect]
     Active Substance: EPOPROSTENOL SODIUM
     Dosage: 148 NG/KG/MIN CONTINUOUSLY; CONCENTRATION: 165,000 NG/ML; PUMP RATE: 92 ML/DAY;VIAL STRENGTH: 1.5 MG
     Dates: start: 19990813
  9. ADCIRCA [Concomitant]
     Active Substance: TADALAFIL

REACTIONS (16)
  - Device related infection [Unknown]
  - Seasonal allergy [Unknown]
  - Upper respiratory tract infection [Not Recovered/Not Resolved]
  - Weight decreased [Unknown]
  - Bone density decreased [Unknown]
  - Gastroenteritis viral [Unknown]
  - Heart rate increased [Unknown]
  - Sneezing [Unknown]
  - Nasopharyngitis [Not Recovered/Not Resolved]
  - Osteopenia [Unknown]
  - Abdominal discomfort [Unknown]
  - Thrombosis [Unknown]
  - Central venous catheterisation [Unknown]
  - Osteoporosis [Unknown]
  - Oxygen saturation decreased [Recovered/Resolved]
  - Insomnia [Not Recovered/Not Resolved]
